FAERS Safety Report 7786590-X (Version None)
Quarter: 2011Q3

REPORT INFORMATION
  Report Type: 
  Country: None (occurrence: None)
  Receive Date: 20110929
  Receipt Date: 20110919
  Transmission Date: 20111222
  Serious: Yes (Hospitalization, Other)
  Sender: FDA-Public Use
  Company Number: US-ELI_LILLY_AND_COMPANY-US201106005016

PATIENT
  Age: 52 Year
  Sex: Female

DRUGS (10)
  1. ZYPREXA [Suspect]
     Dosage: 5 MG, QD
     Route: 048
  2. RITALIN [Concomitant]
     Dosage: UNK, UNKNOWN
     Route: 065
  3. TEGRETOL [Concomitant]
  4. SEROQUEL [Concomitant]
  5. ZYPREXA RELPREVV [Suspect]
     Indication: SCHIZOAFFECTIVE DISORDER BIPOLAR TYPE
     Dosage: UNK, UNKNOWN
     Route: 030
     Dates: start: 20110531
  6. LITHIUM [Concomitant]
  7. ZYPREXA [Suspect]
     Indication: SCHIZOAFFECTIVE DISORDER BIPOLAR TYPE
     Dosage: 15 MG, QD
     Route: 048
  8. TRILEPTAL [Concomitant]
  9. ATIVAN [Concomitant]
     Dosage: UNK, UNKNOWN
     Route: 065
  10. ZYPREXA [Suspect]
     Dosage: 10 MG, QD
     Route: 048

REACTIONS (4)
  - FATIGUE [None]
  - MANIA [None]
  - INTENTIONAL DRUG MISUSE [None]
  - THYROID CANCER [None]
